FAERS Safety Report 17538435 (Version 1)
Quarter: 2020Q1

REPORT INFORMATION
  Report Type: Spontaneous
  Country: US (occurrence: US)
  Receive Date: 20200305
  Receipt Date: 20200305
  Transmission Date: 20200409
  Serious: Yes (Hospitalization)
  Sender: FDA-Public Use
  Company Number: None

PATIENT
  Sex: Female

DRUGS (3)
  1. XELJANZ XR [Concomitant]
     Active Substance: TOFACITINIB CITRATE
  2. CIMZIA [Concomitant]
     Active Substance: CERTOLIZUMAB PEGOL
  3. ACTEMRA [Suspect]
     Active Substance: TOCILIZUMAB
     Indication: RHEUMATOID ARTHRITIS
     Dosage: ?          OTHER FREQUENCY:Q OTHER WEEK ;?
     Route: 058
     Dates: start: 20181108

REACTIONS (3)
  - Spinal operation [None]
  - Rheumatoid arthritis [None]
  - Therapy cessation [None]
